FAERS Safety Report 19361413 (Version 1)
Quarter: 2021Q2

REPORT INFORMATION
  Report Type: Spontaneous
  Country: ES (occurrence: ES)
  Receive Date: 20210601
  Receipt Date: 20210601
  Transmission Date: 20210717
  Serious: Yes (Other)
  Sender: FDA-Public Use
  Company Number: ES-TAKEDA-2021TUS034383

PATIENT
  Age: 73 Year
  Sex: Male

DRUGS (3)
  1. VELCADE [Suspect]
     Active Substance: BORTEZOMIB
     Dosage: 1 DOSAGE FORM
     Route: 058
     Dates: start: 20210409, end: 20210409
  2. VELCADE [Suspect]
     Active Substance: BORTEZOMIB
     Indication: NEOPLASM
     Dosage: 1 DOSAGE FORM
     Route: 058
     Dates: start: 20210402, end: 20210402
  3. VELCADE [Suspect]
     Active Substance: BORTEZOMIB
     Dosage: 1 DOSAGE FORM
     Route: 058
     Dates: start: 20210406, end: 20210406

REACTIONS (2)
  - Incision site rash [Recovered/Resolved]
  - Uveitis [Recovering/Resolving]

NARRATIVE: CASE EVENT DATE: 20210415
